FAERS Safety Report 20634682 (Version 3)
Quarter: 2022Q2

REPORT INFORMATION
  Report Type: Other
  Country: CA (occurrence: CA)
  Receive Date: 20220325
  Receipt Date: 20220414
  Transmission Date: 20220721
  Serious: Yes (Hospitalization)
  Sender: FDA-Public Use
  Company Number: CA-002147023-NVSC2022CA062433

PATIENT
  Age: 42 Year
  Sex: Female

DRUGS (1)
  1. LUCENTIS [Suspect]
     Active Substance: RANIBIZUMAB
     Indication: Diabetic retinopathy
     Dosage: UNK, (10 MG/ML), LEFT EYE
     Route: 031
     Dates: start: 20210219, end: 20220202

REACTIONS (5)
  - Dehydration [Recovered/Resolved]
  - Dizziness [Recovered/Resolved]
  - Intraocular pressure increased [Recovered/Resolved]
  - Nausea [Recovered/Resolved]
  - Eye pain [Recovered/Resolved]
